FAERS Safety Report 16426780 (Version 2)
Quarter: 2019Q3

REPORT INFORMATION
  Report Type: Spontaneous
  Country: None (occurrence: MZ)
  Receive Date: 20190613
  Receipt Date: 20190905
  Transmission Date: 20191004
  Serious: Yes (Other)
  Sender: FDA-Public Use
  Company Number: MZ-POPULATION COUNCIL, INC.-2068190

PATIENT
  Age: 34 Year
  Sex: Female
  Weight: 64 kg

DRUGS (1)
  1. JADELLE [Suspect]
     Active Substance: LEVONORGESTREL
     Indication: CONTRACEPTION
     Route: 059
     Dates: start: 20180913, end: 20190605

REACTIONS (4)
  - Pregnancy with implant contraceptive [Recovered/Resolved]
  - Stillbirth [None]
  - Drug ineffective [None]
  - Drug interaction [None]
